FAERS Safety Report 23558620 (Version 8)
Quarter: 2025Q4

REPORT INFORMATION
  Report Type: Spontaneous
  Country: US (occurrence: US)
  Receive Date: 20240223
  Receipt Date: 20251004
  Transmission Date: 20260117
  Serious: Yes (Hospitalization, Other)
  Sender: UNITED THERAPEUTICS
  Company Number: US-UNITED THERAPEUTICS-UNT-2024-005318

PATIENT
  Sex: Male

DRUGS (7)
  1. TYVASO [Suspect]
     Active Substance: TREPROSTINIL
     Indication: Pulmonary arterial hypertension
     Dosage: UNK
  2. TYVASO [Suspect]
     Active Substance: TREPROSTINIL
     Dosage: UNK (RESTARTED)
  3. TYVASO [Suspect]
     Active Substance: TREPROSTINIL
     Dosage: 54 ?G, UNK
  4. TYVASO [Suspect]
     Active Substance: TREPROSTINIL
     Dosage: UNK (DOSE DECREASED)
  5. TYVASO [Suspect]
     Active Substance: TREPROSTINIL
     Dosage: 18 ?G, QID
  6. OFEV [Concomitant]
     Active Substance: NINTEDANIB
     Indication: Product used for unknown indication
     Dosage: UNK
  7. OXYGEN [Concomitant]
     Active Substance: OXYGEN
     Indication: Product used for unknown indication
     Dosage: UNK

REACTIONS (12)
  - Pulmonary hypertension [Unknown]
  - Pleural effusion [Recovering/Resolving]
  - Bronchiectasis [Unknown]
  - Viral infection [Unknown]
  - Lower respiratory tract infection [Recovered/Resolved]
  - Bronchitis [Unknown]
  - Discomfort [Unknown]
  - Cough [Unknown]
  - Stress [Unknown]
  - Fatigue [Unknown]
  - Drug intolerance [Unknown]
  - Treatment noncompliance [Unknown]

NARRATIVE: CASE EVENT DATE: 20220101
